FAERS Safety Report 18334052 (Version 3)
Quarter: 2023Q1

REPORT INFORMATION
  Report Type: Other
  Country: CA (occurrence: None)
  Receive Date: 20201001
  Receipt Date: 20230116
  Transmission Date: 20230418
  Serious: No
  Sender: FDA-Public Use
  Company Number: CA-ROCHE-2687959

PATIENT
  Age: 57 Year
  Sex: Female

DRUGS (3)
  1. OCREVUS [Suspect]
     Active Substance: OCRELIZUMAB
     Indication: Relapsing-remitting multiple sclerosis
     Dosage: 300 MG AT DAY 0 AND 14, THEN 600 MG EVERY 6 MONTH
     Route: 042
     Dates: start: 20181102
  2. IRBESARTAN [Concomitant]
     Active Substance: IRBESARTAN
  3. METOPROLOL [Concomitant]
     Active Substance: METOPROLOL

REACTIONS (4)
  - Cough [Recovered/Resolved]
  - Influenza [Recovering/Resolving]
  - Pain in extremity [Unknown]
  - Visual impairment [Unknown]

NARRATIVE: CASE EVENT DATE: 20200201
